FAERS Safety Report 9415541 (Version 4)
Quarter: 2013Q4

REPORT INFORMATION
  Report Type: Report from Study
  Country: US (occurrence: US)
  Receive Date: 20130723
  Receipt Date: 20131017
  Transmission Date: 20140711
  Serious: No
  Sender: FDA-Public Use
  Company Number: US-UCBSA-091818

PATIENT
  Age: 34 Year
  Sex: Female
  Weight: 59.42 kg

DRUGS (8)
  1. CIMZIA [Suspect]
     Indication: CROHN^S DISEASE
     Route: 058
     Dates: start: 20120305, end: 20121228
  2. MESALAMINE [Concomitant]
     Indication: CROHN^S DISEASE
     Dates: start: 20110405, end: 20121228
  3. BUDESONIDE [Concomitant]
     Indication: CROHN^S DISEASE
     Dates: start: 20120113, end: 20120227
  4. PREDNISONE [Concomitant]
     Indication: CROHN^S DISEASE
     Dates: start: 20110414, end: 20120301
  5. ZOFRAN [Concomitant]
     Dosage: DOSE: UNKNOWN
  6. CLOMID [Concomitant]
     Dosage: DOSE: UNKNOWN
  7. PRENATAL VITAMINS [Concomitant]
  8. SOLU-MEDROL [Concomitant]
     Indication: CROHN^S DISEASE
     Route: 042
     Dates: start: 2012, end: 2012

REACTIONS (1)
  - Exposure during pregnancy [Recovered/Resolved]
